FAERS Safety Report 20025743 (Version 1)
Quarter: 2021Q4

REPORT INFORMATION
  Report Type: Spontaneous
  Country: IN (occurrence: None)
  Receive Date: 20211102
  Receipt Date: 20211102
  Transmission Date: 20220303
  Serious: Yes (Other)
  Sender: FDA-Public Use
  Company Number: IN-FRESENIUS KABI-FK202111788

PATIENT
  Age: 19 Year
  Sex: Male

DRUGS (1)
  1. CYTARABINE [Suspect]
     Active Substance: CYTARABINE
     Indication: Acute myeloid leukaemia
     Dosage: FIRST CYCLE CONSOLIDATION
     Route: 065

REACTIONS (2)
  - Cerebellar ataxia [Recovered/Resolved]
  - Dysarthria [Not Recovered/Not Resolved]
